FAERS Safety Report 7077594-3 (Version None)
Quarter: 2010Q4

REPORT INFORMATION
  Report Type: 
  Country: None (occurrence: None)
  Receive Date: 20101021
  Receipt Date: 20101005
  Transmission Date: 20110411
  Serious: Yes (Hospitalization)
  Sender: FDA-Public Use
  Company Number: 2010BI035852

PATIENT
  Age: 57 Year
  Sex: Female

DRUGS (10)
  1. ZEVALIN [Suspect]
     Indication: NON-HODGKIN'S LYMPHOMA RECURRENT
     Dosage: 04. MCI/KG;1X;IV
     Route: 042
  2. ZEVALIN [Suspect]
     Indication: STEM CELL TRANSPLANT
     Dosage: 04. MCI/KG;1X;IV
     Route: 042
  3. RITUXIMAB [Concomitant]
  4. FLUDARABINE PHOSPHATE [Concomitant]
  5. BUSULFAN [Concomitant]
  6. THYMOGLOBULIN [Concomitant]
  7. CYCLOSPORINE [Concomitant]
  8. TAZOCILLINE [Concomitant]
  9. PROFENID [Concomitant]
  10. PREV MEDS [Concomitant]

REACTIONS (3)
  - HYPOKALAEMIA [None]
  - HYPONATRAEMIA [None]
  - PAROTITIS [None]
